FAERS Safety Report 18052871 (Version 6)
Quarter: 2021Q2

REPORT INFORMATION
  Report Type: Report from Study
  Country: JP (occurrence: JP)
  Receive Date: 20200721
  Receipt Date: 20210603
  Transmission Date: 20210717
  Serious: Yes (Hospitalization)
  Sender: FDA-Public Use
  Company Number: JP-AMGEN-JPNCT2020114978

PATIENT
  Age: 46 Year
  Sex: Male
  Weight: 61.7 kg

DRUGS (11)
  1. DEXAMETHASONE. [Suspect]
     Active Substance: DEXAMETHASONE
     Indication: PLASMA CELL MYELOMA
     Dosage: 40 MILLIGRAM, PER CHEMO REGIM
     Route: 065
     Dates: start: 20200714, end: 20200714
  2. BAYASPIRIN [Concomitant]
     Active Substance: ASPIRIN
     Dosage: 100 MILLIGRAM
     Route: 048
     Dates: start: 20200714, end: 20200714
  3. CARFILZOMIB [Suspect]
     Active Substance: CARFILZOMIB
     Indication: PLASMA CELL MYELOMA
     Dosage: UNK UNK, PER CHEMO REGIM
     Route: 042
     Dates: start: 20200714
  4. CARFILZOMIB [Suspect]
     Active Substance: CARFILZOMIB
     Dosage: 30 MILLIGRAM, PER CHEMO REGIM
     Route: 042
  5. RANMARK [Concomitant]
     Active Substance: DENOSUMAB
     Dosage: 120 MILLIGRAM
     Route: 058
     Dates: start: 20181220
  6. DENOTAS [Concomitant]
     Active Substance: CALCIUM CARBONATE\CHOLECALCIFEROL\MAGNESIUM CARBONATE
     Dosage: 2 UNK
     Route: 048
     Dates: start: 20181220, end: 20200714
  7. LANSOPRAZOLE. [Concomitant]
     Active Substance: LANSOPRAZOLE
     Dosage: 15 MILLIGRAM
     Route: 048
     Dates: start: 20200714, end: 20200714
  8. LENALIDOMIDE [Suspect]
     Active Substance: LENALIDOMIDE
     Indication: PLASMA CELL MYELOMA
     Dosage: 25 MILLIGRAM, PER CHEMO REGIM
     Route: 065
     Dates: start: 20200714, end: 20200714
  9. FEBURIC [Concomitant]
     Active Substance: FEBUXOSTAT
     Dosage: 10?50 MILLIGRAM
     Route: 048
     Dates: start: 20200515
  10. ACICLOVIR [Concomitant]
     Active Substance: ACYCLOVIR
     Dosage: 200 MILLIGRAM
     Dates: start: 20200714, end: 20200714
  11. DAIPHEN [Concomitant]
     Active Substance: SULFAMETHOXAZOLE\TRIMETHOPRIM
     Dosage: 1 UNK
     Route: 048
     Dates: start: 20200714, end: 20200714

REACTIONS (1)
  - Circulatory collapse [Recovered/Resolved]

NARRATIVE: CASE EVENT DATE: 20200715
